FAERS Safety Report 8383406 (Version 10)
Quarter: 2015Q2

REPORT INFORMATION
  Report Type: Spontaneous
  Country: US (occurrence: US)
  Receive Date: 20120201
  Receipt Date: 20150521
  Transmission Date: 20150821
  Serious: Yes (Congenital Anomaly, Other)
  Sender: FDA-Public Use
  Company Number: US-GLAXOSMITHKLINE-A0963970A

PATIENT

DRUGS (2)
  1. PAXIL CR [Suspect]
     Active Substance: PAROXETINE HYDROCHLORIDE
     Indication: DEPRESSION
     Dosage: 12.5 MG, QD
     Route: 064
     Dates: start: 20040707
  2. PAXIL [Suspect]
     Active Substance: PAROXETINE HYDROCHLORIDE
     Indication: PRODUCT USED FOR UNKNOWN INDICATION
     Dosage: UNK, QD
     Route: 048
     Dates: start: 20041118, end: 200506

REACTIONS (11)
  - Oroantral fistula [Unknown]
  - Malpositioned teeth [Unknown]
  - Congenital oral malformation [Unknown]
  - Velopharyngeal incompetence [Unknown]
  - Stickler^s syndrome [Unknown]
  - Retrognathia [Unknown]
  - Foetal exposure during pregnancy [Unknown]
  - Deafness [Unknown]
  - Cleft palate [Unknown]
  - Otitis media chronic [Unknown]
  - Speech disorder developmental [Unknown]

NARRATIVE: CASE EVENT DATE: 20050521
